FAERS Safety Report 17458246 (Version 1)
Quarter: 2020Q1

REPORT INFORMATION
  Report Type: Spontaneous
  Country: US (occurrence: US)
  Receive Date: 20200225
  Receipt Date: 20200225
  Transmission Date: 20200409
  Serious: No
  Sender: FDA-Public Use
  Company Number: US-MATRIXX INITIATIVES, INC.-2080889

PATIENT
  Age: 78 Year
  Sex: Male
  Weight: 73.18 kg

DRUGS (8)
  1. LUTEIN [Concomitant]
     Active Substance: LUTEIN
  2. FOCUS FACTOR SUPPLEMENT [Concomitant]
  3. TUMERIC [Concomitant]
     Active Substance: HERBALS\TURMERIC
  4. ZYRTEC [Concomitant]
     Active Substance: CETIRIZINE HYDROCHLORIDE
  5. ZICAM COLD REMEDY [Suspect]
     Active Substance: HOMEOPATHICS\ZINC ACETATE\ZINC GLUCONATE
     Indication: NASOPHARYNGITIS
     Route: 048
     Dates: start: 20200223, end: 20200224
  6. LEVOTHYROXINE. [Concomitant]
     Active Substance: LEVOTHYROXINE
  7. VITAMIN D DROPS [Concomitant]
  8. ZEAXANTHIN [Concomitant]
     Active Substance: ZEAXANTHIN

REACTIONS (1)
  - Ageusia [None]
